FAERS Safety Report 25318175 (Version 1)
Quarter: 2025Q2

REPORT INFORMATION
  Report Type: Spontaneous
  Country: US (occurrence: None)
  Receive Date: 20250514
  Receipt Date: 20250514
  Transmission Date: 20250717
  Serious: Yes (Hospitalization)
  Sender: FDA-CTU
  Company Number: None

PATIENT
  Sex: Female

DRUGS (5)
  1. RINVOQ [Suspect]
     Active Substance: UPADACITINIB
     Indication: Rheumatoid arthritis
     Dosage: FREQUENCY : DAILY;?
     Route: 048
     Dates: start: 20210819
  2. ARAVA [Concomitant]
     Active Substance: LEFLUNOMIDE
  3. IMEDROL TAB4MG [Concomitant]
  4. METHYLPHENID TAB 10MG [Concomitant]
  5. PREDNISONE [Concomitant]
     Active Substance: PREDNISONE

REACTIONS (6)
  - Hallucinations, mixed [None]
  - Confusional state [None]
  - Renal failure [None]
  - Hepatic enzyme increased [None]
  - Pulmonary thrombosis [None]
  - Loss of personal independence in daily activities [None]
